FAERS Safety Report 18556004 (Version 1)
Quarter: 2020Q4

REPORT INFORMATION
  Report Type: Spontaneous
  Country: US (occurrence: US)
  Receive Date: 20201127
  Receipt Date: 20201127
  Transmission Date: 20210114
  Serious: No
  Sender: FDA-Public Use
  Company Number: US-PERRIGO-19US014500

PATIENT
  Age: 65 Year
  Sex: Female
  Weight: 76.64 kg

DRUGS (9)
  1. CITALOPRAM [Concomitant]
     Active Substance: CITALOPRAM HYDROBROMIDE
     Indication: DEPRESSION
     Dosage: UNK, UNK
     Route: 065
     Dates: start: 2009, end: 20191026
  2. CITALOPRAM [Concomitant]
     Active Substance: CITALOPRAM HYDROBROMIDE
     Dosage: UNK, UNK
     Route: 065
     Dates: start: 2019
  3. GABAPENTIN. [Concomitant]
     Active Substance: GABAPENTIN
     Indication: NEURALGIA
     Dosage: UNK, UNK
     Route: 065
     Dates: start: 2009, end: 20191026
  4. NICOTINE POLACRILEX [Suspect]
     Active Substance: NICOTINE
     Dosage: 4 MG, SINGLE
     Route: 002
     Dates: start: 20191122, end: 20191122
  5. VITAMINS NOS [Concomitant]
     Active Substance: VITAMINS
     Indication: PRODUCT USED FOR UNKNOWN INDICATION
     Dosage: UNK, UNK
     Route: 065
     Dates: end: 20191026
  6. GABAPENTIN. [Concomitant]
     Active Substance: GABAPENTIN
     Dosage: UNK, UNK
     Route: 065
     Dates: start: 2019
  7. NICOTINE POLACRILEX [Suspect]
     Active Substance: NICOTINE
     Dosage: 4 MG, EVERY 4 HOURS
     Route: 048
     Dates: start: 20191023, end: 20191026
  8. NICOTINE POLACRILEX [Suspect]
     Active Substance: NICOTINE
     Indication: SMOKING CESSATION THERAPY
     Dosage: 4 MG, EVERY 4 HOURS
     Route: 002
     Dates: start: 2018, end: 20191022
  9. VITAMINS NOS [Concomitant]
     Active Substance: VITAMINS
     Dosage: UNK, UNK
     Route: 065
     Dates: start: 2019

REACTIONS (5)
  - Malaise [Recovered/Resolved]
  - Abdominal pain upper [Not Recovered/Not Resolved]
  - Headache [Not Recovered/Not Resolved]
  - Nausea [Recovered/Resolved]
  - Wrong technique in product usage process [Recovered/Resolved]

NARRATIVE: CASE EVENT DATE: 201910
